FAERS Safety Report 9559162 (Version 2)
Quarter: 2013Q3

REPORT INFORMATION
  Report Type: Spontaneous
  Country: FR (occurrence: FR)
  Receive Date: 20130927
  Receipt Date: 20130927
  Transmission Date: 20140515
  Serious: Yes (Death, Hospitalization, Other)
  Sender: FDA-Public Use
  Company Number: FR-BRISTOL-MYERS SQUIBB COMPANY-19222785

PATIENT
  Age: 92 Year
  Sex: Female

DRUGS (7)
  1. COUMADIN TABS 2 MG [Suspect]
     Indication: ATRIAL FIBRILLATION
     Dosage: UNSPECIFIED DATE TO 04-AUG-2013
     Dates: end: 20130804
  2. BEPANTHENE [Concomitant]
  3. EUPANTOL [Concomitant]
     Dates: end: 20130804
  4. LASILIX [Concomitant]
  5. DOLIPRANE [Concomitant]
     Dosage: IF NEEDED
  6. TRANSIPEG [Concomitant]
     Dosage: TRANSIPEG (MACROGOL 3350) 3 SACHETS PER DAY IF NEEDED
  7. TARDYFERON [Concomitant]

REACTIONS (6)
  - Death [Fatal]
  - Melaena [Not Recovered/Not Resolved]
  - Anaemia [Recovering/Resolving]
  - International normalised ratio increased [Recovering/Resolving]
  - Adenocarcinoma of colon [Unknown]
  - Overdose [Unknown]
